FAERS Safety Report 8452790-9 (Version None)
Quarter: 2012Q2

REPORT INFORMATION
  Report Type: 
  Country: None (occurrence: None)
  Receive Date: 20120620
  Receipt Date: 20120426
  Transmission Date: 20120825
  Serious: No
  Sender: FDA-Public Use
  Company Number: US-VERTEX PHARMACEUTICALS INC.-AE-2012-006019

PATIENT
  Sex: Male
  Weight: 94.432 kg

DRUGS (9)
  1. CELEXA [Concomitant]
  2. PEGASYS [Concomitant]
     Indication: HEPATITIS C
     Route: 058
     Dates: start: 20120412
  3. RIBAVIRIN [Concomitant]
     Indication: HEPATITIS C
     Dates: start: 20120412
  4. OMEPRAZOLE [Concomitant]
  5. INCIVEK [Suspect]
     Indication: HEPATITIS C
     Route: 048
     Dates: start: 20120412
  6. BISMUTH SUBSALICYLATE [Concomitant]
  7. PROSCAR [Concomitant]
  8. ZOFRAN [Concomitant]
  9. DIPHENHYDRAMINE HCL [Concomitant]

REACTIONS (2)
  - DIARRHOEA [None]
  - DEPRESSION [None]
